FAERS Safety Report 6771152-3 (Version None)
Quarter: 2010Q2

REPORT INFORMATION
  Report Type: 
  Country: None (occurrence: None)
  Receive Date: 20100614
  Receipt Date: 20100614
  Transmission Date: 20101027
  Serious: No
  Sender: FDA-Public Use
  Company Number: None

PATIENT
  Sex: Female
  Weight: 54.4316 kg

DRUGS (2)
  1. BETAMETHASONE [Suspect]
     Indication: ECZEMA
     Dosage: NDC 0136-0041-60
     Dates: start: 20100308
  2. BETAMETHASONE [Suspect]
     Indication: PRURITUS
     Dosage: NDC 0136-0041-60
     Dates: start: 20100308

REACTIONS (3)
  - BURNING SENSATION [None]
  - PAIN [None]
  - PRURITUS [None]
